FAERS Safety Report 20643655 (Version 1)
Quarter: 2022Q1

REPORT INFORMATION
  Report Type: Spontaneous
  Country: US (occurrence: None)
  Receive Date: 20220326
  Receipt Date: 20220326
  Transmission Date: 20220423
  Serious: No
  Sender: FDA-Public Use
  Company Number: None

PATIENT
  Sex: Male

DRUGS (4)
  1. INLYTA [Suspect]
     Active Substance: AXITINIB
     Indication: Renal cancer
     Dosage: FREQUENCY : TWICE A DAY;?
     Route: 048
  2. LIPITOR [Concomitant]
  3. KEYTRUDA [Concomitant]
     Active Substance: PEMBROLIZUMAB
  4. OMEPRAZOLE [Concomitant]

REACTIONS (4)
  - Weight decreased [None]
  - Diarrhoea [None]
  - Asthenia [None]
  - Fall [None]
